FAERS Safety Report 23525006 (Version 2)
Quarter: 2024Q2

REPORT INFORMATION
  Report Type: Spontaneous
  Country: JP (occurrence: JP)
  Receive Date: 20240215
  Receipt Date: 20240404
  Transmission Date: 20240716
  Serious: Yes (Death, Other)
  Sender: FDA-Public Use
  Company Number: JP-shionogi-202400349_SYP_P_1

PATIENT

DRUGS (7)
  1. SYMPROIC [Suspect]
     Active Substance: NALDEMEDINE
     Indication: Constipation
     Dosage: 0.2 MG, QD
     Route: 048
     Dates: end: 20240117
  2. CYMBALTA [Suspect]
     Active Substance: DULOXETINE HYDROCHLORIDE
     Indication: Neuralgia
     Dosage: 20 MG, 1 PER 12 HOUR
     Route: 048
     Dates: start: 20240115, end: 20240117
  3. METHADONE HYDROCHLORIDE [Suspect]
     Active Substance: METHADONE HYDROCHLORIDE
     Indication: Analgesic therapy
     Dosage: 5 MG, PRN8
     Route: 048
     Dates: end: 20240116
  4. MAGNESIUM OXIDE [Concomitant]
     Active Substance: MAGNESIUM OXIDE
     Indication: Constipation
     Dosage: 250 MG, PRN8
     Route: 048
     Dates: end: 20240117
  5. LORAZEPAM [Concomitant]
     Active Substance: LORAZEPAM
     Indication: Product used for unknown indication
     Dosage: 0.5 MG, QD
     Route: 048
     Dates: end: 20240117
  6. OMEPRAZOLE [Concomitant]
     Active Substance: OMEPRAZOLE
     Indication: Prophylaxis against gastrointestinal ulcer
     Dosage: 20 MG, QD
     Route: 042
     Dates: start: 20240113, end: 20240130
  7. FLURBIPROFEN AXETIL [Concomitant]
     Active Substance: FLURBIPROFEN AXETIL
     Indication: Analgesic therapy
     Dosage: 100 MG
     Route: 042
     Dates: start: 20240113, end: 20240130

REACTIONS (4)
  - Nasopharyngeal cancer [Fatal]
  - Throat irritation [Unknown]
  - Constipation [Recovering/Resolving]
  - Intentional product use issue [Unknown]

NARRATIVE: CASE EVENT DATE: 20240116
